FAERS Safety Report 7460251-9 (Version None)
Quarter: 2011Q2

REPORT INFORMATION
  Report Type: 
  Country: None (occurrence: None)
  Receive Date: 20110505
  Receipt Date: 20110427
  Transmission Date: 20111010
  Serious: Yes (Hospitalization)
  Sender: FDA-Public Use
  Company Number: AU-ROCHE-773998

PATIENT
  Age: 71 Year
  Sex: Male

DRUGS (6)
  1. ASPIRIN [Concomitant]
  2. XELODA [Suspect]
     Dosage: FREQUENCY: DAILY
     Route: 048
     Dates: start: 20101006
  3. DULOXETINE HYDROCHLORIDE [Concomitant]
  4. XALATAN [Concomitant]
  5. ELOXATIN [Suspect]
     Route: 042
     Dates: start: 20101207, end: 20101207
  6. ENOXAPARIN SODIUM [Concomitant]

REACTIONS (1)
  - SMALL INTESTINAL OBSTRUCTION [None]
